FAERS Safety Report 4867428-7 (Version None)
Quarter: 2005Q4

REPORT INFORMATION
  Report Type: 
  Country: None (occurrence: None)
  Receive Date: 20051222
  Receipt Date: 20051212
  Transmission Date: 20060501
  Serious: Yes (Life-Threatening, Hospitalization, Disabling, Other)
  Sender: FDA-Public Use
  Company Number: 2005064312

PATIENT
  Age: 71 Year
  Sex: Male

DRUGS (8)
  1. BEXTRA [Suspect]
     Indication: ANKYLOSING SPONDYLITIS
     Dosage: 20 MG (20  MG, 1 IN 1 D), ORAL
     Route: 048
     Dates: start: 20041001, end: 20050408
  2. ASPIRIN [Concomitant]
  3. FUROSEMIDE [Concomitant]
  4. CLONIDINE [Concomitant]
  5. VICODIN [Concomitant]
  6. ACIPHEX [Concomitant]
  7. ZOCOR [Concomitant]
  8. ADALAT CC [Concomitant]

REACTIONS (14)
  - ABDOMINAL DISCOMFORT [None]
  - BLOOD PRESSURE DECREASED [None]
  - DIALYSIS [None]
  - GASTROINTESTINAL DISORDER [None]
  - GASTROINTESTINAL NECROSIS [None]
  - LEUKOCYTOCLASTIC VASCULITIS [None]
  - MALAISE [None]
  - MULTI-ORGAN FAILURE [None]
  - NAUSEA [None]
  - ORGAN FAILURE [None]
  - PURPURA [None]
  - RENAL FAILURE [None]
  - RESPIRATORY DISTRESS [None]
  - VOMITING [None]
